FAERS Safety Report 14271433 (Version 2)
Quarter: 2018Q1

REPORT INFORMATION
  Report Type: Spontaneous
  Country: CA (occurrence: CA)
  Receive Date: 20171211
  Receipt Date: 20180102
  Transmission Date: 20180508
  Serious: Yes (Other)
  Sender: FDA-Public Use
  Company Number: CA-BAYER-2017-131770

PATIENT
  Age: 21 Year
  Sex: Female

DRUGS (5)
  1. MACROBID [Concomitant]
     Active Substance: NITROFURANTOIN\NITROFURANTOIN MONOHYDRATE
     Dosage: 1 DF, QD
  2. LITHIUM. [Concomitant]
     Active Substance: LITHIUM
     Indication: BIPOLAR DISORDER
     Dosage: 150 MG, BID
     Route: 048
  3. LITHIUM. [Concomitant]
     Active Substance: LITHIUM
     Indication: BIPOLAR DISORDER
     Dosage: 300 MG, BID
     Route: 048
  4. JAYDESS [Suspect]
     Active Substance: LEVONORGESTREL
     Dosage: 14 MCG/24HR, CONT
     Route: 015
     Dates: start: 20140828
  5. CYMBALTA [Concomitant]
     Active Substance: DULOXETINE HYDROCHLORIDE
     Indication: PAIN

REACTIONS (8)
  - Streptococcal urinary tract infection [None]
  - Genital haemorrhage [Recovered/Resolved]
  - Drug ineffective [None]
  - Menometrorrhagia [Recovered/Resolved]
  - Metrorrhagia [None]
  - Anaemia [None]
  - Pregnancy with contraceptive device [Recovered/Resolved]
  - Device expulsion [None]

NARRATIVE: CASE EVENT DATE: 20140917
